FAERS Safety Report 17009695 (Version 1)
Quarter: 2019Q4

REPORT INFORMATION
  Report Type: Spontaneous
  Country: US (occurrence: US)
  Receive Date: 20190929
  Receipt Date: 20190929
  Transmission Date: 20200122
  Serious: Yes (Hospitalization)
  Sender: FDA-Public Use
  Company Number: None

PATIENT
  Age: 73 Year
  Sex: Female
  Weight: 102.5 kg

DRUGS (2)
  1. FEMARA [Suspect]
     Active Substance: LETROZOLE
     Dates: end: 20190917
  2. PALBOCICLIB (PD-0332991) [Suspect]
     Active Substance: PALBOCICLIB
     Dates: end: 20190910

REACTIONS (3)
  - Anaemia [None]
  - Chest pain [None]
  - Gastric haemorrhage [None]

NARRATIVE: CASE EVENT DATE: 20190918
